FAERS Safety Report 14733231 (Version 5)
Quarter: 2018Q4

REPORT INFORMATION
  Report Type: Spontaneous
  Country: NL (occurrence: NL)
  Receive Date: 20180409
  Receipt Date: 20181012
  Transmission Date: 20190204
  Serious: Yes (Life-Threatening, Hospitalization, Other)
  Sender: FDA-Public Use
  Company Number: NL-AUROBINDO-AUR-APL-2018-018213

PATIENT
  Age: 31 Year
  Sex: Female

DRUGS (5)
  1. AMOXICILLIN+CLAVULANIC ACID FILM-COATED TABLETS [Suspect]
     Active Substance: AMOXICILLIN\CLAVULANIC ACID
     Indication: CYSTITIS
     Dosage: UNK UNK, ONCE A DAY
     Route: 048
     Dates: start: 20150708, end: 20150713
  2. PARACETAMOL [Concomitant]
     Active Substance: ACETAMINOPHEN
     Indication: PRODUCT USED FOR UNKNOWN INDICATION
     Dosage: UNK UNK, UNKNOWN FREQ
     Route: 065
  3. FOLIC ACID. [Concomitant]
     Active Substance: FOLIC ACID
     Indication: PRODUCT USED FOR UNKNOWN INDICATION
     Dosage: UNK UNK, UNKNOWN FREQ
     Route: 065
  4. RENNIES [Concomitant]
     Indication: PRODUCT USED FOR UNKNOWN INDICATION
     Dosage: UNK UNK, UNKNOWN FREQ
     Route: 016
  5. PREDNISOLONE. [Concomitant]
     Active Substance: PREDNISOLONE
     Indication: PRODUCT USED FOR UNKNOWN INDICATION
     Dosage: UNK
     Route: 065

REACTIONS (13)
  - Herpes gestationis [Recovering/Resolving]
  - Myocarditis [Unknown]
  - Hepatic enzyme increased [Recovering/Resolving]
  - Erythema [Recovering/Resolving]
  - Polymorphic eruption of pregnancy [Recovering/Resolving]
  - Cardiac tamponade [Recovered/Resolved]
  - Interstitial lung disease [Recovering/Resolving]
  - Exposure during pregnancy [Unknown]
  - Eosinophilia [Recovering/Resolving]
  - Myocardial necrosis marker increased [Recovering/Resolving]
  - Drug reaction with eosinophilia and systemic symptoms [Recovering/Resolving]
  - Eosinophilic myocarditis [Recovering/Resolving]
  - Tachycardia [Recovering/Resolving]

NARRATIVE: CASE EVENT DATE: 20150708
